FAERS Safety Report 12487804 (Version 1)
Quarter: 2016Q2

REPORT INFORMATION
  Report Type: Spontaneous
  Country: BR (occurrence: BR)
  Receive Date: 20160622
  Receipt Date: 20160622
  Transmission Date: 20160815
  Serious: Yes (Other)
  Sender: FDA-Public Use
  Company Number: PHHY2016BR025990

PATIENT
  Sex: Female
  Weight: 48 kg

DRUGS (4)
  1. TRILEPTAL [Suspect]
     Active Substance: OXCARBAZEPINE
     Dosage: 8 ML, UNK
     Route: 048
  2. TRILEPTAL [Suspect]
     Active Substance: OXCARBAZEPINE
     Indication: SEIZURE
     Dosage: 20 ML (6 ML IN THE MORNING, 7 ML IN THE AFTERNOON AND 7 ML AT NIGHT, GRADUALLY INCREMENTED), UKN
     Route: 048
  3. TRILEPTAL [Suspect]
     Active Substance: OXCARBAZEPINE
     Dosage: 22 ML (7 ML IN THE MORNING, 7 ML AT LUNCH AND 8 ML AT NIGHT), UKN
     Route: 048
  4. URBANIL [Concomitant]
     Active Substance: CLOBAZAM
     Indication: SEIZURE
     Dosage: 1 DF (ONE TABLET), QD
     Route: 048

REACTIONS (5)
  - Wrong technique in product usage process [Unknown]
  - Hormone level abnormal [Recovering/Resolving]
  - Cognitive disorder [Recovering/Resolving]
  - Seizure [Recovering/Resolving]
  - Ataxia [Recovering/Resolving]
